FAERS Safety Report 10082093 (Version 4)
Quarter: 2014Q2

REPORT INFORMATION
  Report Type: Report from Study
  Country: US (occurrence: US)
  Receive Date: 20140416
  Receipt Date: 20140609
  Transmission Date: 20141212
  Serious: Yes (Hospitalization)
  Sender: FDA-Public Use
  Company Number: US-SA-2014SA042834

PATIENT
  Age: 88 Year
  Sex: Male
  Weight: 73.5 kg

DRUGS (7)
  1. LANTUS SOLOSTAR [Suspect]
     Indication: TYPE 2 DIABETES MELLITUS
     Dosage: STRAT DATE: BEEN ON LANTUS SINCE 20 YEAR DOSE:25 UNIT(S)
     Route: 065
     Dates: start: 1994
  2. SOLOSTAR [Concomitant]
     Indication: DEVICE THERAPY
  3. AMLODIPINE [Concomitant]
     Dates: start: 20120301
  4. LOSARTAN [Concomitant]
     Dates: start: 20100112
  5. TRICOR [Concomitant]
     Indication: BLOOD TRIGLYCERIDES
     Dates: start: 20120512
  6. PLAVIX [Concomitant]
     Indication: ARTERIAL DISORDER
     Dates: start: 20120210
  7. LIPITOR [Concomitant]
     Indication: BLOOD CHOLESTEROL
     Dates: start: 20080712

REACTIONS (3)
  - Neoplasm malignant [Not Recovered/Not Resolved]
  - Gait disturbance [Unknown]
  - Blood glucose increased [Unknown]
